FAERS Safety Report 26166424 (Version 1)
Quarter: 2025Q4

REPORT INFORMATION
  Report Type: Spontaneous
  Country: US (occurrence: US)
  Receive Date: 20251217
  Receipt Date: 20251217
  Transmission Date: 20260117
  Serious: No
  Sender: CELLTRION
  Company Number: US-CELLTRION INC.-2025US012347

PATIENT

DRUGS (7)
  1. RITUXIMAB [Suspect]
     Active Substance: RITUXIMAB
     Indication: Antiphospholipid syndrome
     Dosage: FIRST DOSE OF RITUXIMAB 4 MONTHS EARLIER, WITH A PLAN FOR A SECONDINFUSION 1 MONTH LATER AND SUBSEQU
  2. METOPROLOL [Concomitant]
     Active Substance: METOPROLOL
     Indication: Retinal artery occlusion
     Dosage: UNK
  3. ASPIRIN [Concomitant]
     Active Substance: ASPIRIN
     Indication: Retinal artery occlusion
     Dosage: 81 MG
  4. WARFARIN [Concomitant]
     Active Substance: WARFARIN
     Indication: Retinal artery occlusion
     Dosage: UNK
  5. MYCOPHENOLATE SODIUM [Concomitant]
     Active Substance: MYCOPHENOLATE SODIUM
     Indication: Retinal artery occlusion
     Dosage: UNK
     Route: 048
  6. HYDROXYCHLOROQUINE [Concomitant]
     Active Substance: HYDROXYCHLOROQUINE
     Indication: Retinal artery occlusion
     Dosage: 5.9 MG/KG/DAY
  7. PREDNISONE [Concomitant]
     Active Substance: PREDNISONE
     Indication: Retinal artery occlusion
     Dosage: 50 MG/DAY
     Route: 048

REACTIONS (1)
  - Drug ineffective for unapproved indication [Unknown]
